FAERS Safety Report 16282351 (Version 4)
Quarter: 2020Q4

REPORT INFORMATION
  Report Type: Spontaneous
  Country: UM (occurrence: UM)
  Receive Date: 20190507
  Receipt Date: 20201221
  Transmission Date: 20210113
  Serious: Yes (Other)
  Sender: FDA-Public Use
  Company Number: UM-PFIZER INC-2019161276

PATIENT
  Age: 44 Year
  Sex: Female

DRUGS (1)
  1. AROMASIN [Suspect]
     Active Substance: EXEMESTANE
     Indication: BREAST CANCER FEMALE
     Dosage: 25 MG, 1X/DAY
     Dates: start: 2019

REACTIONS (8)
  - Diabetes mellitus [Not Recovered/Not Resolved]
  - Body temperature increased [Unknown]
  - Illness [Unknown]
  - Insomnia [Unknown]
  - Arthralgia [Unknown]
  - Hypertension [Not Recovered/Not Resolved]
  - Dry eye [Not Recovered/Not Resolved]
  - Headache [Unknown]
